FAERS Safety Report 7269016-4 (Version None)
Quarter: 2011Q1

REPORT INFORMATION
  Report Type: 
  Country: None (occurrence: None)
  Receive Date: 20110202
  Receipt Date: 20110121
  Transmission Date: 20110831
  Serious: Yes (Hospitalization)
  Sender: FDA-Public Use
  Company Number: US-BIOGENIDEC-2010BI044754

PATIENT
  Age: 58 Year
  Sex: Female

DRUGS (2)
  1. AVONEX [Concomitant]
     Indication: MULTIPLE SCLEROSIS
     Route: 030
     Dates: start: 20001220
  2. TYSABRI [Suspect]
     Indication: MULTIPLE SCLEROSIS
     Route: 042
     Dates: start: 20070409

REACTIONS (5)
  - DEHYDRATION [None]
  - MULTIPLE SCLEROSIS RELAPSE [None]
  - TRANSIENT ISCHAEMIC ATTACK [None]
  - PROGRESSIVE MULTIPLE SCLEROSIS [None]
  - CONVULSION [None]
